FAERS Safety Report 5641313-5 (Version None)
Quarter: 2008Q1

REPORT INFORMATION
  Report Type: 
  Country: None (occurrence: None)
  Receive Date: 20080227
  Receipt Date: 20070516
  Transmission Date: 20080703
  Serious: No
  Sender: FDA-Public Use
  Company Number: A0651358A

PATIENT
  Age: 45 Year
  Sex: Female

DRUGS (1)
  1. NICORETTE [Suspect]

REACTIONS (3)
  - INTENTIONAL DRUG MISUSE [None]
  - NICOTINE DEPENDENCE [None]
  - ORAL DISCOMFORT [None]
